FAERS Safety Report 4930832-2 (Version None)
Quarter: 2006Q1

REPORT INFORMATION
  Report Type: 
  Country: None (occurrence: None)
  Receive Date: 20060227
  Receipt Date: 20060214
  Transmission Date: 20060701
  Serious: Yes (Hospitalization)
  Sender: FDA-Public Use
  Company Number: 200610179BNE

PATIENT
  Age: 77 Year
  Sex: Male

DRUGS (7)
  1. ASPIRIN [Suspect]
     Indication: ANTIPLATELET THERAPY
     Dosage: 300 MG, TOTAL DAILY, ORAL
     Route: 048
     Dates: end: 20060127
  2. PAROXETINE HCL [Suspect]
     Indication: DEPRESSION
     Dosage: 20 MG, TOTAL DAILY, ORAL
     Route: 048
  3. RAMIPRIL [Concomitant]
  4. METFORMIN [Concomitant]
  5. LABETALOL HCL [Concomitant]
  6. NIFEDIPINE [Concomitant]
  7. DEXAMFETAMINE [Concomitant]

REACTIONS (2)
  - DYSPNOEA [None]
  - MELAENA [None]
